FAERS Safety Report 7689810-5 (Version None)
Quarter: 2011Q3

REPORT INFORMATION
  Report Type: 
  Country: None (occurrence: None)
  Receive Date: 20110818
  Receipt Date: 20110811
  Transmission Date: 20111222
  Serious: Yes (Death, Life-Threatening, Other)
  Sender: FDA-Public Use
  Company Number: US-BIOGENIDEC-2011BI012193

PATIENT
  Age: 58 Year
  Sex: Female

DRUGS (4)
  1. TYSABRI [Suspect]
     Indication: MULTIPLE SCLEROSIS
     Route: 042
     Dates: start: 20090922, end: 20110111
  2. DIOVAN [Concomitant]
     Indication: HYPERTENSION
     Route: 048
     Dates: start: 20060101
  3. PROVIGIL [Concomitant]
     Indication: FATIGUE
     Route: 048
     Dates: start: 20080101
  4. VALTREX [Concomitant]
     Indication: ORAL HERPES

REACTIONS (1)
  - BONE SARCOMA [None]
